FAERS Safety Report 7657766-7 (Version None)
Quarter: 2011Q3

REPORT INFORMATION
  Report Type: 
  Country: None (occurrence: None)
  Receive Date: 20110805
  Receipt Date: 20110728
  Transmission Date: 20111222
  Serious: Yes (Hospitalization)
  Sender: FDA-Public Use
  Company Number: US-BIOGENIDEC-2010BI045266

PATIENT
  Age: 52 Year
  Sex: Female
  Weight: 102 kg

DRUGS (3)
  1. TYSABRI [Suspect]
     Indication: MULTIPLE SCLEROSIS
     Route: 042
     Dates: start: 20090903
  2. AVONEX [Concomitant]
     Route: 030
     Dates: start: 19990301, end: 20000501
  3. AVONEX [Concomitant]
     Indication: MULTIPLE SCLEROSIS
     Route: 030
     Dates: start: 20090901

REACTIONS (16)
  - ANAEMIA [None]
  - URINARY TRACT INFECTION [None]
  - ABASIA [None]
  - POST PROCEDURAL COMPLICATION [None]
  - LOSS OF CONTROL OF LEGS [None]
  - SOMNOLENCE [None]
  - INFUSION SITE PRURITUS [None]
  - OSTEONECROSIS [None]
  - FATIGUE [None]
  - WEIGHT INCREASED [None]
  - CRYING [None]
  - MUSCLE SPASTICITY [None]
  - URINARY INCONTINENCE [None]
  - HYPERSENSITIVITY [None]
  - MOBILITY DECREASED [None]
  - MUSCULOSKELETAL PAIN [None]
